FAERS Safety Report 9203188 (Version 1)
Quarter: 2013Q1

REPORT INFORMATION
  Report Type: Spontaneous
  Country: AU (occurrence: None)
  Receive Date: 20130329
  Receipt Date: 20130329
  Transmission Date: 20140127
  Serious: Yes (Death)
  Sender: FDA-Public Use
  Company Number: 2013-090

PATIENT
  Age: 47 Year
  Sex: Female

DRUGS (1)
  1. CLOZAPINE [Suspect]
     Indication: SCHIZOPHRENIA
     Route: 048

REACTIONS (6)
  - Toxicity to various agents [None]
  - Traumatic haemorrhage [None]
  - Traumatic haematoma [None]
  - Multiple injuries [None]
  - Intentional self-injury [None]
  - Head injury [None]
